FAERS Safety Report 14116479 (Version 1)
Quarter: 2017Q4

REPORT INFORMATION
  Report Type: Spontaneous
  Country: JP (occurrence: JP)
  Receive Date: 20171023
  Receipt Date: 20171023
  Transmission Date: 20180321
  Serious: Yes (Other)
  Sender: FDA-Public Use
  Company Number: JP-PFIZER INC-2017448720

PATIENT

DRUGS (3)
  1. MEROPENEM PFIZER [Suspect]
     Active Substance: MEROPENEM
     Dosage: UNK
     Route: 042
  2. TAZOPIPE [Concomitant]
     Active Substance: PIPERACILLIN SODIUM\TAZOBACTAM SODIUM
     Dosage: 1 DF, 3X/DAY(6:00, 14:00, 22:00)
     Route: 042
  3. NORMAL SALINE [Concomitant]
     Active Substance: SODIUM CHLORIDE
     Dosage: 50 ML, 3X/DAY(6:00, 14:00, 22:00)
     Route: 042

REACTIONS (5)
  - Wrong patient received medication [Unknown]
  - Dyspnoea [Unknown]
  - Anaphylactic shock [Unknown]
  - Chills [Unknown]
  - Wheezing [Unknown]
